FAERS Safety Report 19144482 (Version 1)
Quarter: 2021Q2

REPORT INFORMATION
  Report Type: Spontaneous
  Country: US (occurrence: US)
  Receive Date: 20210415
  Receipt Date: 20210415
  Transmission Date: 20210717
  Serious: No
  Sender: FDA-Public Use
  Company Number: None

PATIENT
  Age: 57 Year
  Sex: Male
  Weight: 115.4 kg

DRUGS (1)
  1. DAPTOMYCIN 500 MG [Suspect]
     Active Substance: DAPTOMYCIN
     Indication: POST PROCEDURAL INFECTION
     Dosage: OTHER FREQUENCY:24 HOUR;?
     Route: 042
     Dates: start: 20210318, end: 20210409

REACTIONS (3)
  - Muscle spasms [None]
  - Myalgia [None]
  - Blood creatine phosphokinase increased [None]

NARRATIVE: CASE EVENT DATE: 20210409
